FAERS Safety Report 5916834-8 (Version None)
Quarter: 2008Q3

REPORT INFORMATION
  Report Type: 
  Country: None (occurrence: None)
  Receive Date: 20080909
  Receipt Date: 20080221
  Transmission Date: 20090109
  Serious: Yes (Disabling)
  Sender: FDA-Public Use
  Company Number: 163-20785-07120704

PATIENT
  Sex: Male

DRUGS (3)
  1. THALOMID [Suspect]
     Indication: MULTIPLE MYELOMA
     Dosage: 150 MG, QD, ORAL
     Route: 048
     Dates: start: 20041201, end: 20071101
  2. WARFARIN SODIUM [Concomitant]
  3. DEXAMETHASONE TAB [Concomitant]

REACTIONS (3)
  - ERECTILE DYSFUNCTION [None]
  - FALL [None]
  - NEUROPATHY PERIPHERAL [None]
